FAERS Safety Report 7240908-5 (Version None)
Quarter: 2011Q1

REPORT INFORMATION
  Report Type: 
  Country: None (occurrence: None)
  Receive Date: 20110124
  Receipt Date: 20110111
  Transmission Date: 20110831
  Serious: Yes (Hospitalization, Other)
  Sender: FDA-Public Use
  Company Number: PHHY2010CA88267

PATIENT
  Sex: Female

DRUGS (8)
  1. ACLASTA [Suspect]
     Indication: OSTEOPOROSIS
     Dosage: 5 MG PER YEAR
     Route: 042
     Dates: start: 20090501, end: 20100127
  2. CRESTOR [Concomitant]
     Dosage: 40 MG, QD
  3. VITAMIN D [Concomitant]
     Dosage: UNK
     Dates: start: 20090101
  4. CALCIUM [Concomitant]
     Dosage: UNK
     Dates: start: 20090101
  5. TYLENOL-500 [Concomitant]
  6. MICARDIS [Concomitant]
     Dosage: 80 MG, QD
     Dates: start: 20041001
  7. PLAVIX [Concomitant]
     Dosage: 75 MG, QD
     Dates: start: 20020101
  8. CAL-MAG [Concomitant]
     Dosage: 250 MG, UNK
     Dates: start: 20091026

REACTIONS (5)
  - CARDIAC DISORDER [None]
  - ATRIAL FIBRILLATION [None]
  - PULMONARY EMBOLISM [None]
  - OXYGEN SATURATION DECREASED [None]
  - HERPES ZOSTER [None]
